FAERS Safety Report 12314258 (Version 2)
Quarter: 2016Q2

REPORT INFORMATION
  Report Type: Spontaneous
  Country: US (occurrence: US)
  Receive Date: 20160428
  Receipt Date: 20160513
  Transmission Date: 20160815
  Serious: Yes (Other)
  Sender: FDA-Public Use
  Company Number: US-PFIZER INC-2016221874

PATIENT
  Age: 59 Year
  Sex: Female

DRUGS (6)
  1. EFFEXOR XR [Concomitant]
     Active Substance: VENLAFAXINE HYDROCHLORIDE
     Dosage: 75 MG, DAILY
  2. LYRICA [Suspect]
     Active Substance: PREGABALIN
     Indication: FIBROMYALGIA
     Dosage: 150 MG, 3X/DAY
  3. ENDOCET [Concomitant]
     Active Substance: ACETAMINOPHEN\OXYCODONE HYDROCHLORIDE
     Dosage: 10/325 Q 4-6
  4. FIORICET [Concomitant]
     Active Substance: ACETAMINOPHEN\BUTALBITAL\CAFFEINE
     Dosage: 50 - 325 - 40MG 2XDAY
  5. SOMA [Concomitant]
     Active Substance: CARISOPRODOL
     Dosage: 350 MG, Q 4-6
  6. VALIUM [Concomitant]
     Active Substance: DIAZEPAM
     Dosage: 1 TAB 2XDAILY AS NEEDED

REACTIONS (4)
  - Visual acuity reduced [Unknown]
  - Road traffic accident [Unknown]
  - Joint swelling [Unknown]
  - Drug ineffective [Unknown]

NARRATIVE: CASE EVENT DATE: 20160412
